FAERS Safety Report 7491783-5 (Version None)
Quarter: 2011Q2

REPORT INFORMATION
  Report Type: 
  Country: None (occurrence: None)
  Receive Date: 20110519
  Receipt Date: 20090324
  Transmission Date: 20111010
  Serious: Yes (Death, Hospitalization, Other)
  Sender: FDA-Public Use
  Company Number: US-BAYER-201038219NA

PATIENT
  Age: 66 Year
  Sex: Female
  Weight: 115 kg

DRUGS (34)
  1. DARVOCET [Concomitant]
     Indication: PRODUCT USED FOR UNKNOWN INDICATION
     Dosage: N100/ FOUR TIMES PER DAY
  2. PACERONE [Concomitant]
     Indication: PRODUCT USED FOR UNKNOWN INDICATION
     Dosage: 200 MG, BID
  3. LASIX [Concomitant]
     Indication: PRODUCT USED FOR UNKNOWN INDICATION
     Dosage: 40 MG, QD
  4. PLAVIX [Concomitant]
     Indication: PRODUCT USED FOR UNKNOWN INDICATION
     Dosage: 75 MG, QD
     Dates: start: 20060809
  5. EPINEPHRINE [Concomitant]
     Indication: PRODUCT USED FOR UNKNOWN INDICATION
     Dosage: 25 MG, UNK
     Route: 042
     Dates: start: 20060816
  6. ZYRTEC [Concomitant]
     Indication: PRODUCT USED FOR UNKNOWN INDICATION
     Dosage: 10 MG, UNK
  7. HEPARIN [Concomitant]
     Indication: PRODUCT USED FOR UNKNOWN INDICATION
     Dosage: UNK
     Route: 042
     Dates: start: 20060816
  8. PROTAMINE SULFATE [Concomitant]
     Indication: PRODUCT USED FOR UNKNOWN INDICATION
     Dosage: UNK
     Route: 042
     Dates: start: 20060816
  9. TRASYLOL [Suspect]
     Indication: HEART VALVE OPERATION
     Dosage: 2 DOSE FORMS
     Route: 042
     Dates: start: 20060816
  10. TRASYLOL [Suspect]
     Dosage: 50 ML, Q1HR
     Route: 041
     Dates: start: 20060816
  11. VERSED [Concomitant]
     Indication: PRODUCT USED FOR UNKNOWN INDICATION
     Dosage: 10 MG, UNK
     Route: 042
     Dates: start: 20060816
  12. PREDNISONE [Concomitant]
     Indication: PRODUCT USED FOR UNKNOWN INDICATION
     Dosage: 5 MG, QD
  13. LOTREL [Concomitant]
     Indication: PRODUCT USED FOR UNKNOWN INDICATION
     Dosage: 10/20 QD, UNK
  14. MANNITOL [Concomitant]
     Indication: PRODUCT USED FOR UNKNOWN INDICATION
     Dosage: UNK
     Route: 042
     Dates: start: 20060816
  15. CONTRAST MEDIA [Concomitant]
     Dosage: UNK
     Dates: start: 20060819
  16. GLIPIZIDE [Concomitant]
     Indication: PRODUCT USED FOR UNKNOWN INDICATION
     Dosage: 10 MG, QD
  17. FAMVIR [Concomitant]
     Indication: PRODUCT USED FOR UNKNOWN INDICATION
     Dosage: 500 MG, UNK
  18. CALTRATE [CALCIUM CARBONATE] [Concomitant]
     Indication: PRODUCT USED FOR UNKNOWN INDICATION
     Dosage: 600 MG, QD
  19. EPHEDRINE [Concomitant]
     Indication: PRODUCT USED FOR UNKNOWN INDICATION
     Dosage: UNK
     Route: 042
     Dates: start: 20060816
  20. TRASYLOL [Suspect]
     Indication: AORTIC VALVE REPLACEMENT
     Dosage: 200 MG (LOADING DOSE), UNK
     Dates: start: 20060816
  21. ROBAXIN [Concomitant]
     Indication: PRODUCT USED FOR UNKNOWN INDICATION
     Dosage: 500 MG, TID
  22. LOPRESSOR [Concomitant]
     Indication: PRODUCT USED FOR UNKNOWN INDICATION
     Dosage: 50 MG, QD
  23. SPIRONOLACTONE [Concomitant]
     Indication: PRODUCT USED FOR UNKNOWN INDICATION
     Dosage: 25 MG, UNK
  24. DIGOXIN [Concomitant]
     Indication: PRODUCT USED FOR UNKNOWN INDICATION
     Dosage: 0.125 MG, UNK
     Dates: start: 20050701
  25. INS [INSULIN] [Concomitant]
     Indication: PRODUCT USED FOR UNKNOWN INDICATION
     Dosage: UNK
     Dates: start: 20060816
  26. ZOCOR [Concomitant]
     Indication: PRODUCT USED FOR UNKNOWN INDICATION
     Dosage: 20 MG, HS
  27. ULTRAM [Concomitant]
     Indication: PRODUCT USED FOR UNKNOWN INDICATION
     Dosage: 50 MG, Q4HR
  28. ACETYLSALICYLIC ACID SRT [Concomitant]
     Indication: PRODUCT USED FOR UNKNOWN INDICATION
     Dosage: UNK UNK, QD
  29. PHENYLEPHRINE HCL [Concomitant]
     Indication: PRODUCT USED FOR UNKNOWN INDICATION
     Dosage: UNK
     Route: 041
     Dates: start: 20060816
  30. PROPYLTHIOURACIL [Concomitant]
     Indication: PRODUCT USED FOR UNKNOWN INDICATION
     Dosage: 50 MG, BID
  31. COUMADIN [Concomitant]
     Indication: PRODUCT USED FOR UNKNOWN INDICATION
     Dosage: UNK
     Dates: start: 20051207
  32. LEVOPHED [Concomitant]
     Indication: PRODUCT USED FOR UNKNOWN INDICATION
     Dosage: UNK
     Route: 041
     Dates: start: 20060816
  33. ATROPINE [Concomitant]
     Indication: PRODUCT USED FOR UNKNOWN INDICATION
     Dosage: UNK
     Route: 042
     Dates: start: 20060816
  34. CONTRAST MEDIA [Concomitant]
     Indication: CATHETERISATION CARDIAC
     Dosage: UNK
     Dates: start: 20060505

REACTIONS (20)
  - BRADYCARDIA [None]
  - UNEVALUABLE EVENT [None]
  - RENAL FAILURE ACUTE [None]
  - HYPOTENSION [None]
  - INJURY [None]
  - EMOTIONAL DISTRESS [None]
  - ANXIETY [None]
  - CARDIAC ARREST [None]
  - MULTI-ORGAN FAILURE [None]
  - RENAL IMPAIRMENT [None]
  - PETIT MAL EPILEPSY [None]
  - CARDIAC FAILURE CONGESTIVE [None]
  - ATRIOVENTRICULAR BLOCK COMPLETE [None]
  - RENAL FAILURE [None]
  - DEATH [None]
  - RESPIRATORY ARREST [None]
  - RENAL INJURY [None]
  - FEAR [None]
  - STRESS [None]
  - PAIN [None]
